FAERS Safety Report 16718226 (Version 1)
Quarter: 2019Q3

REPORT INFORMATION
  Report Type: Report from Study
  Country: None (occurrence: US)
  Receive Date: 20190820
  Receipt Date: 20190820
  Transmission Date: 20191005
  Serious: Yes (Hospitalization, Other)
  Sender: FDA-Public Use
  Company Number: US-ABBVIE-19K-163-2744249-00

PATIENT
  Age: 60 Year
  Sex: Female
  Weight: 93.98 kg

DRUGS (1)
  1. HUMIRA [Suspect]
     Active Substance: ADALIMUMAB
     Indication: RHEUMATOID ARTHRITIS
     Route: 058

REACTIONS (4)
  - Neck injury [Recovering/Resolving]
  - Cerebrovascular accident [Recovering/Resolving]
  - Fall [Recovering/Resolving]
  - Incision site pain [Recovering/Resolving]

NARRATIVE: CASE EVENT DATE: 201901
